FAERS Safety Report 5840610-8 (Version None)
Quarter: 2008Q3

REPORT INFORMATION
  Report Type: 
  Country: None (occurrence: None)
  Receive Date: 20080811
  Receipt Date: 20080729
  Transmission Date: 20090109
  Serious: Yes (Other)
  Sender: FDA-Public Use
  Company Number: GB-ROCHE-578366

PATIENT
  Age: 29 Year
  Sex: Male

DRUGS (1)
  1. XELODA [Suspect]
     Indication: COLORECTAL CANCER
     Dosage: TREATMENT WAS DISCONTINUED AFTER CYCLE ONE
     Route: 065

REACTIONS (1)
  - PERICARDITIS [None]
